FAERS Safety Report 5681322-3 (Version None)
Quarter: 2008Q1

REPORT INFORMATION
  Report Type: 
  Country: None (occurrence: None)
  Receive Date: 20080326
  Receipt Date: 20070122
  Transmission Date: 20080703
  Serious: No
  Sender: FDA-Public Use
  Company Number: US-BAYER-US-2007-002323

PATIENT
  Age: 37 Year
  Sex: Female
  Weight: 113 kg

DRUGS (4)
  1. MIRENA [Suspect]
     Indication: CONTRACEPTION
     Route: 015
     Dates: start: 20070108
  2. ALLEGRA [Concomitant]
  3. ALLEGRA-D /01367401/ [Concomitant]
  4. NASONEX [Concomitant]

REACTIONS (3)
  - CERVIX DISORDER [None]
  - PROCEDURAL PAIN [None]
  - SYNCOPE VASOVAGAL [None]
